FAERS Safety Report 6997654-2 (Version None)
Quarter: 2010Q3

REPORT INFORMATION
  Report Type: 
  Country: None (occurrence: None)
  Receive Date: 20100918
  Receipt Date: 20091110
  Transmission Date: 20110219
  Serious: No
  Sender: FDA-Public Use
  Company Number: US-WYE-H12141209

PATIENT
  Sex: Male
  Weight: 90.8 kg

DRUGS (3)
  1. PRISTIQ [Suspect]
     Indication: DEPRESSION
     Route: 048
     Dates: start: 20090801, end: 20091106
  2. PRISTIQ [Suspect]
     Dosage: ALTERNATING TAKING 50 MG QD WITH 100 MG QD
     Route: 048
     Dates: start: 20091107
  3. WELLBUTRIN [Concomitant]

REACTIONS (4)
  - ANGER [None]
  - ANXIETY [None]
  - FATIGUE [None]
  - MIDDLE INSOMNIA [None]
